FAERS Safety Report 16929525 (Version 1)
Quarter: 2019Q4

REPORT INFORMATION
  Report Type: Spontaneous
  Country: US (occurrence: US)
  Receive Date: 20191017
  Receipt Date: 20191017
  Transmission Date: 20200122
  Serious: Yes (Other)
  Sender: FDA-Public Use
  Company Number: US-ROCHE-2439619

PATIENT
  Age: 49 Year
  Sex: Female

DRUGS (4)
  1. ATEZOLIZUMAB. [Suspect]
     Active Substance: ATEZOLIZUMAB
     Indication: SMALL CELL LUNG CANCER
     Route: 065
  2. ETOPOSIDE. [Concomitant]
     Active Substance: ETOPOSIDE
     Indication: SMALL CELL LUNG CANCER
  3. TOLVAPTAN [Concomitant]
     Active Substance: TOLVAPTAN
  4. CARBOPLATIN. [Concomitant]
     Active Substance: CARBOPLATIN
     Indication: SMALL CELL LUNG CANCER

REACTIONS (1)
  - Optic neuritis [Not Recovered/Not Resolved]
